FAERS Safety Report 8866238 (Version 3)
Quarter: 2013Q1

REPORT INFORMATION
  Report Type: Spontaneous
  Country: GB (occurrence: GB)
  Receive Date: 20121025
  Receipt Date: 20130204
  Transmission Date: 20140127
  Serious: Yes (Hospitalization)
  Sender: FDA-Public Use
  Company Number: PHFR2012GB005553

PATIENT
  Sex: Male

DRUGS (2)
  1. CLOZARIL [Suspect]
     Indication: SCHIZOPHRENIA
     Dosage: UNK UKN, UNK
     Route: 048
     Dates: start: 20080602, end: 20121023
  2. CLOZARIL [Suspect]
     Dosage: UNK UKN, UNK
     Dates: start: 20121128

REACTIONS (10)
  - Hydrocephalus [Recovered/Resolved]
  - Depressed level of consciousness [Recovered/Resolved]
  - Disorientation [Recovered/Resolved]
  - Bradyphrenia [Unknown]
  - Repetitive speech [Unknown]
  - Brain oedema [Unknown]
  - Confusional state [Unknown]
  - Psychomotor hyperactivity [Recovering/Resolving]
  - Amnesia [Unknown]
  - Medical device complication [Unknown]
